FAERS Safety Report 7817007-4 (Version None)
Quarter: 2011Q4

REPORT INFORMATION
  Report Type: 
  Country: None (occurrence: None)
  Receive Date: 20111017
  Receipt Date: 20111006
  Transmission Date: 20120403
  Serious: Yes (Life-Threatening, Other)
  Sender: FDA-Public Use
  Company Number: GR-UCBSA-043051

PATIENT
  Age: 63 Year
  Sex: Male

DRUGS (3)
  1. TEMODAL [Suspect]
  2. ARIXTRA [Concomitant]
  3. KEPPRA [Suspect]
     Indication: GLIOBLASTOMA

REACTIONS (2)
  - OFF LABEL USE [None]
  - APLASTIC ANAEMIA [None]
